FAERS Safety Report 12899045 (Version 7)
Quarter: 2017Q3

REPORT INFORMATION
  Report Type: Report from Study
  Country: MX (occurrence: MX)
  Receive Date: 20161101
  Receipt Date: 20170729
  Transmission Date: 20171127
  Serious: Yes (Hospitalization)
  Sender: FDA-Public Use
  Company Number: MX-ROCHE-1847831

PATIENT
  Age: 64 Year
  Sex: Female
  Weight: 57.5 kg

DRUGS (9)
  1. ROACTEMRA [Suspect]
     Active Substance: TOCILIZUMAB
     Route: 042
     Dates: start: 2013, end: 2014
  2. DEFLAZACORT [Concomitant]
     Active Substance: DEFLAZACORT
     Indication: RHEUMATOID ARTHRITIS
     Dosage: CURRENTLY ONGOING
     Route: 048
     Dates: start: 2011
  3. OMEPRAZOLE. [Concomitant]
     Active Substance: OMEPRAZOLE
     Indication: DYSPEPSIA
     Dosage: CURRENTLY ONGOING
     Route: 048
     Dates: start: 2011
  4. ROACTEMRA [Suspect]
     Active Substance: TOCILIZUMAB
     Route: 042
     Dates: start: 2012, end: 2013
  5. ROACTEMRA [Suspect]
     Active Substance: TOCILIZUMAB
     Indication: RHEUMATOID ARTHRITIS
     Route: 042
     Dates: start: 2011, end: 2012
  6. ROACTEMRA [Suspect]
     Active Substance: TOCILIZUMAB
     Dosage: CURRENTLY ONGOING
     Route: 042
     Dates: start: 2014, end: 201701
  7. ROACTEMRA [Suspect]
     Active Substance: TOCILIZUMAB
     Route: 042
     Dates: start: 20170127
  8. PLAQUENIL [Concomitant]
     Active Substance: HYDROXYCHLOROQUINE SULFATE
     Indication: RHEUMATOID ARTHRITIS
     Dosage: CURRENTLY ONGOING
     Route: 048
     Dates: start: 2011
  9. ROACTEMRA [Suspect]
     Active Substance: TOCILIZUMAB
     Route: 042

REACTIONS (12)
  - Urinary tract infection [Not Recovered/Not Resolved]
  - Pharyngitis [Recovering/Resolving]
  - Transaminases increased [Recovered/Resolved]
  - Hiatus hernia [Recovered/Resolved]
  - Dry eye [Recovering/Resolving]
  - Urinary tract infection [Recovered/Resolved]
  - Arthralgia [Unknown]
  - Inflammation [Recovering/Resolving]
  - Muscle rigidity [Not Recovered/Not Resolved]
  - Drug ineffective [Unknown]
  - Rhinitis [Recovering/Resolving]
  - Influenza [Not Recovered/Not Resolved]

NARRATIVE: CASE EVENT DATE: 2013
